FAERS Safety Report 21733930 (Version 1)
Quarter: 2022Q4

REPORT INFORMATION
  Report Type: Spontaneous
  Country: US (occurrence: None)
  Receive Date: 20221214
  Receipt Date: 20221214
  Transmission Date: 20230112
  Serious: No
  Sender: FDA-Public Use
  Company Number: None

PATIENT
  Age: 17 Year
  Sex: Female
  Weight: 61.69 kg

DRUGS (1)
  1. ZIEXTENZO [Suspect]
     Active Substance: PEGFILGRASTIM-BMEZ
     Indication: Soft tissue sarcoma
     Dosage: OTHER FREQUENCY : 1X 24HRS AFTER 14D;?
     Route: 058
     Dates: start: 202210

REACTIONS (1)
  - Haemoglobin decreased [None]
